FAERS Safety Report 13471252 (Version 1)
Quarter: 2017Q2

REPORT INFORMATION
  Report Type: Spontaneous
  Country: US (occurrence: US)
  Receive Date: 20170421
  Receipt Date: 20170421
  Transmission Date: 20170830
  Serious: No
  Sender: FDA-Public Use
  Company Number: None

PATIENT
  Sex: Female
  Weight: 114.7 kg

DRUGS (3)
  1. MAKENA [Suspect]
     Active Substance: HYDROXYPROGESTERONE CAPROATE
     Indication: PREMATURE LABOUR
     Dosage: ?          OTHER FREQUENCY:ONCE A WEEK;?
     Route: 030
     Dates: start: 20170324
  2. MAKENA [Suspect]
     Active Substance: HYDROXYPROGESTERONE CAPROATE
     Indication: PROPHYLAXIS
     Dosage: ?          OTHER FREQUENCY:ONCE A WEEK;?
     Route: 030
     Dates: start: 20170324
  3. PRENATALS [Concomitant]

REACTIONS (3)
  - Injection site reaction [None]
  - Injection site pruritus [None]
  - Injection site pain [None]
